FAERS Safety Report 8346074-7 (Version None)
Quarter: 2012Q2

REPORT INFORMATION
  Report Type: 
  Country: None (occurrence: None)
  Receive Date: 20120509
  Receipt Date: 20120502
  Transmission Date: 20120825
  Serious: No
  Sender: FDA-Public Use
  Company Number: US-PFIZER INC-2012108895

PATIENT
  Sex: Male

DRUGS (4)
  1. AVELOX [Suspect]
     Dosage: UNK
  2. MORPHINE SULFATE [Suspect]
     Dosage: UNK
  3. POTASSIUM PENICILLIN G [Suspect]
  4. SPIRONOLACTONE [Suspect]
     Dosage: UNK
     Route: 048

REACTIONS (1)
  - DRUG HYPERSENSITIVITY [None]
